FAERS Safety Report 8298627-2 (Version None)
Quarter: 2012Q2

REPORT INFORMATION
  Report Type: 
  Country: None (occurrence: None)
  Receive Date: 20120417
  Receipt Date: 20120402
  Transmission Date: 20120825
  Serious: Yes (Death)
  Sender: FDA-Public Use
  Company Number: EU-2012-10110

PATIENT

DRUGS (1)
  1. SAMSCA [Suspect]

REACTIONS (1)
  - DEATH [None]
